FAERS Safety Report 5057964-5 (Version None)
Quarter: 2006Q3

REPORT INFORMATION
  Report Type: 
  Country: None (occurrence: None)
  Receive Date: 20060721
  Receipt Date: 20060424
  Transmission Date: 20061208
  Serious: No
  Sender: FDA-Public Use
  Company Number: US-GLAXOSMITHKLINE-A0603021A

PATIENT
  Age: 64 Year
  Sex: Female

DRUGS (7)
  1. AVANDIA [Suspect]
     Route: 048
     Dates: start: 20050501, end: 20050701
  2. TRICOR [Concomitant]
  3. CRESTOR [Concomitant]
  4. COREG [Concomitant]
  5. ESTRADIOL [Concomitant]
  6. AVAPRO [Concomitant]
  7. METFORMIN [Concomitant]

REACTIONS (1)
  - WEIGHT INCREASED [None]
